FAERS Safety Report 4334067-6 (Version None)
Quarter: 2004Q2

REPORT INFORMATION
  Report Type: 
  Country: None (occurrence: None)
  Receive Date: 20040402
  Receipt Date: 20040323
  Transmission Date: 20050107
  Serious: Yes (Other)
  Sender: FDA-Public Use
  Company Number: 2004020159

PATIENT
  Sex: Male

DRUGS (1)
  1. PHENYTOIN SODIUM [Suspect]
     Indication: SIMPLE PARTIAL SEIZURES
     Dosage: 300 MG

REACTIONS (1)
  - LACTIC ACIDOSIS [None]
